FAERS Safety Report 7591392-3 (Version None)
Quarter: 2011Q3

REPORT INFORMATION
  Report Type: 
  Country: None (occurrence: None)
  Receive Date: 20110706
  Receipt Date: 20110623
  Transmission Date: 20111222
  Serious: Yes (Death, Disabling)
  Sender: FDA-Public Use
  Company Number: JP-AMGEN-JPNCT2010009640

PATIENT
  Age: 70 Year
  Sex: Male
  Weight: 47 kg

DRUGS (20)
  1. OXINORM [Concomitant]
     Dosage: UNK
     Route: 048
  2. DEXAMETHASONE SODIUM PHOSPHATE [Concomitant]
     Dosage: UNK
     Route: 042
  3. LOXONIN [Concomitant]
     Dosage: UNK
     Route: 062
  4. KENALOG [Concomitant]
     Dosage: UNK
     Route: 048
  5. BASEN 1 [Concomitant]
     Dosage: UNK
     Route: 048
  6. ACTOS [Concomitant]
     Dosage: UNK
     Route: 048
  7. CORTICOSTEROIDS [Concomitant]
     Indication: PROPHYLAXIS
     Dosage: UNK
     Route: 065
  8. OXALIPLATIN [Concomitant]
     Indication: COLORECTAL CANCER
     Route: 041
     Dates: start: 20100721, end: 20100909
  9. FLAVERIC [Concomitant]
     Dosage: UNK
     Route: 048
  10. GRANISETRON [Concomitant]
     Dosage: UNK
     Route: 042
  11. DISOPYRAMIDE PHOSPHATE [Concomitant]
     Dosage: UNK
     Route: 048
  12. FULMETA [Concomitant]
     Dosage: UNK
     Route: 062
  13. RABEPRAZOLE SODIUM [Concomitant]
     Dosage: UNK
     Route: 048
  14. FLUOROURACIL [Concomitant]
     Indication: COLORECTAL CANCER
     Route: 041
     Dates: start: 20100721, end: 20100909
  15. LEUCOVORIN CALCIUM [Concomitant]
     Indication: COLORECTAL CANCER
     Route: 041
     Dates: start: 20100721, end: 20100909
  16. PANITUMUMAB [Suspect]
     Indication: COLORECTAL CANCER
     Dosage: 6 MG/KG, Q2WK
     Route: 041
     Dates: start: 20100721, end: 20100909
  17. HIRUDOID [Concomitant]
     Dosage: UNK
     Route: 062
  18. PRIMPERAN TAB [Concomitant]
     Dosage: UNK
     Route: 048
  19. PROCHLORPERAZINE [Concomitant]
     Dosage: UNK
     Route: 048
  20. GLYBURIDE [Concomitant]
     Dosage: UNK
     Route: 048

REACTIONS (3)
  - HEPATIC FUNCTION ABNORMAL [None]
  - COLORECTAL CANCER [None]
  - HERPES ZOSTER [None]
